FAERS Safety Report 7827363-9 (Version None)
Quarter: 2011Q4

REPORT INFORMATION
  Report Type: 
  Country: None (occurrence: None)
  Receive Date: 20111020
  Receipt Date: 20111020
  Transmission Date: 20120403
  Serious: Yes (Death, Hospitalization, Other)
  Sender: FDA-Public Use
  Company Number: US-PFIZER INC-2005101440

PATIENT
  Sex: Female
  Weight: 58.51 kg

DRUGS (1)
  1. SUNITINIB MALATE [Suspect]
     Indication: GASTROINTESTINAL STROMAL TUMOUR
     Dosage: 50 MG, 1X/DAY
     Route: 048
     Dates: start: 20050617, end: 20050714

REACTIONS (4)
  - GASTROINTESTINAL STROMAL TUMOUR [None]
  - THROMBOCYTOPENIA [None]
  - CONVULSION [None]
  - DISEASE PROGRESSION [None]
